FAERS Safety Report 18547613 (Version 1)
Quarter: 2020Q4

REPORT INFORMATION
  Report Type: Spontaneous
  Country: US (occurrence: US)
  Receive Date: 20201126
  Receipt Date: 20201126
  Transmission Date: 20210114
  Serious: No
  Sender: FDA-Public Use
  Company Number: US-APOTEX-2020AP019460

PATIENT
  Sex: Male

DRUGS (1)
  1. NICOTINE. [Suspect]
     Active Substance: NICOTINE
     Indication: PRODUCT USED FOR UNKNOWN INDICATION
     Dosage: 3 DOSAGE FORM
     Route: 062
     Dates: start: 202009

REACTIONS (3)
  - Application site pruritus [Unknown]
  - Application site urticaria [Unknown]
  - Application site erythema [Unknown]

NARRATIVE: CASE EVENT DATE: 202009
